FAERS Safety Report 5674824-7 (Version None)
Quarter: 2008Q1

REPORT INFORMATION
  Report Type: 
  Country: None (occurrence: None)
  Receive Date: 20080320
  Receipt Date: 20080314
  Transmission Date: 20080703
  Serious: Yes (Hospitalization)
  Sender: FDA-Public Use
  Company Number: US-AVENTIS-200812409GDDC

PATIENT
  Age: 72 Year
  Sex: Male
  Weight: 75.2 kg

DRUGS (9)
  1. TAXOTERE [Suspect]
     Route: 042
     Dates: start: 20080313, end: 20080313
  2. LONAFARNIB [Suspect]
  3. DEXAMETHASONE TAB [Concomitant]
  4. ACETAMINOPHEN [Concomitant]
  5. OXYCODONE HCL [Concomitant]
     Indication: PAIN
  6. SYNTHROID [Concomitant]
     Dosage: DOSE: 1 TABLET
     Route: 048
  7. OMEPRAZOLE [Concomitant]
     Route: 048
  8. ADVAIR DISKUS 100/50 [Concomitant]
     Dosage: DOSE: 2 PUFFS
  9. ALBUTEROL [Concomitant]

REACTIONS (1)
  - HEPATIC LESION [None]
